FAERS Safety Report 21110335 (Version 2)
Quarter: 2022Q4

REPORT INFORMATION
  Report Type: Spontaneous
  Country: US (occurrence: US)
  Receive Date: 20220721
  Receipt Date: 20221026
  Transmission Date: 20230113
  Serious: No
  Sender: FDA-Public Use
  Company Number: US-ENDO PHARMACEUTICALS INC-2022-003639

PATIENT
  Sex: Female

DRUGS (3)
  1. QWO [Suspect]
     Active Substance: COLLAGENASE CLOSTRIDIUM HISTOLYTICUM-AAES
     Indication: Cellulite
     Dosage: UNK UNKNOWN, UNKNOWN (TREATMENT ONE)
     Route: 065
     Dates: start: 20220302
  2. QWO [Suspect]
     Active Substance: COLLAGENASE CLOSTRIDIUM HISTOLYTICUM-AAES
     Dosage: UNK UNKNOWN, UNKNOWN (TREATMENT TWO)
     Route: 065
     Dates: start: 20220323
  3. QWO [Suspect]
     Active Substance: COLLAGENASE CLOSTRIDIUM HISTOLYTICUM-AAES
     Dosage: UNK UNKNOWN, UNKNOWN (TREATMENT THREE)
     Route: 065
     Dates: start: 20220417

REACTIONS (12)
  - Weight decreased [Unknown]
  - Skin laxity [Not Recovered/Not Resolved]
  - Injection site indentation [Not Recovered/Not Resolved]
  - Injection site erythema [Unknown]
  - Injection site bruising [Unknown]
  - Tenderness [Unknown]
  - Injection site swelling [Unknown]
  - Injection site nodule [Unknown]
  - Drug effect less than expected [Unknown]
  - Inappropriate schedule of product administration [Unknown]
  - Product preparation issue [Unknown]
  - Off label use [Unknown]

NARRATIVE: CASE EVENT DATE: 20220101
